FAERS Safety Report 13855086 (Version 6)
Quarter: 2017Q4

REPORT INFORMATION
  Report Type: Spontaneous
  Country: US (occurrence: US)
  Receive Date: 20170810
  Receipt Date: 20171226
  Transmission Date: 20180320
  Serious: Yes (Other)
  Sender: FDA-Public Use
  Company Number: PHEH2017US024948

PATIENT
  Sex: Female

DRUGS (2)
  1. ONDANSETRON DR REDDY [Suspect]
     Active Substance: ONDANSETRON
     Indication: VOMITING IN PREGNANCY
     Dosage: 1 DF, PRN
     Route: 048
     Dates: start: 20120928, end: 20121028
  2. ZOFRAN [Suspect]
     Active Substance: ONDANSETRON HYDROCHLORIDE
     Indication: VOMITING IN PREGNANCY
     Dosage: 1 DF, PRN
     Route: 048
     Dates: start: 20120928, end: 20130205

REACTIONS (13)
  - Pharyngitis [Unknown]
  - Product use in unapproved indication [Unknown]
  - Complication of pregnancy [Unknown]
  - Nasopharyngitis [Unknown]
  - Nasal congestion [Unknown]
  - Oropharyngeal pain [Unknown]
  - Foetal hypokinesia [Unknown]
  - Maternal exposure during pregnancy [Unknown]
  - Dysphonia [Unknown]
  - Tonsillar hypertrophy [Unknown]
  - Headache [Unknown]
  - Injury [Unknown]
  - Ear pain [Unknown]
